FAERS Safety Report 14602019 (Version 2)
Quarter: 2018Q2

REPORT INFORMATION
  Report Type: Spontaneous
  Country: DE (occurrence: DE)
  Receive Date: 20180306
  Receipt Date: 20180507
  Transmission Date: 20180711
  Serious: Yes (Hospitalization, Other)
  Sender: FDA-Public Use
  Company Number: DE-ASTRAZENECA-2018SE24844

PATIENT
  Age: 34 Year
  Sex: Male

DRUGS (5)
  1. KALIUM [Concomitant]
     Active Substance: POTASSIUM CHLORIDE
     Indication: PRODUCT USED FOR UNKNOWN INDICATION
     Dosage: 1 DF, UNK
     Dates: start: 20161214
  2. QUETIAPINE. [Suspect]
     Active Substance: QUETIAPINE
     Indication: PRODUCT USED FOR UNKNOWN INDICATION
     Dosage: 1 DF = UP TO 400MG 11-AUG (YEAR UNKNOWN) TO 09-SEP-2016 1 DF = 100 TO 300 MG ON 14-DEC-2016 1 DF = U
     Route: 048
     Dates: end: 20160909
  3. LEVETIRACETAM. [Suspect]
     Active Substance: LEVETIRACETAM
     Indication: EPILEPSY
     Route: 065
  4. ARIPIPRAZOLE. [Suspect]
     Active Substance: ARIPIPRAZOLE
     Indication: PRODUCT USED FOR UNKNOWN INDICATION
     Dosage: 1 DF = UPTO 30 MG FROM 11-AUG (YEAR UNKNOWN) TO 09-SEP-2016 1 DF = 5 MG TO 10 MG (14-DEC-2016 TO ...
     Route: 048
     Dates: end: 20170207
  5. ARIPIPRAZOLE. [Suspect]
     Active Substance: ARIPIPRAZOLE
     Indication: PRODUCT USED FOR UNKNOWN INDICATION
     Route: 048
     Dates: end: 20170207

REACTIONS (5)
  - Seizure [Unknown]
  - Epilepsy [Recovered/Resolved]
  - Stupor [Unknown]
  - Hospitalisation [Unknown]
  - Therapy cessation [Unknown]

NARRATIVE: CASE EVENT DATE: 20161214
